FAERS Safety Report 12245766 (Version 1)
Quarter: 2016Q2

REPORT INFORMATION
  Report Type: Spontaneous
  Country: US (occurrence: None)
  Receive Date: 20160406
  Receipt Date: 20160406
  Transmission Date: 20160815
  Serious: No
  Sender: FDA-Public Use
  Company Number: None

PATIENT
  Age: 64 Year
  Sex: Female

DRUGS (1)
  1. IBRANCE [Suspect]
     Active Substance: PALBOCICLIB
     Indication: BREAST CANCER
     Dosage: 1 CAPSULE QD PO
     Route: 048
     Dates: start: 20151012, end: 20160221

REACTIONS (8)
  - Melaena [None]
  - Hypersomnia [None]
  - Suicidal ideation [None]
  - Depression [None]
  - Laceration [None]
  - Pruritus [None]
  - Cognitive disorder [None]
  - Asthenia [None]

NARRATIVE: CASE EVENT DATE: 20160221
